FAERS Safety Report 8568440-7 (Version None)
Quarter: 2012Q3

REPORT INFORMATION
  Report Type: 
  Country: None (occurrence: None)
  Receive Date: 20120803
  Receipt Date: 20100507
  Transmission Date: 20120928
  Serious: Yes (Other)
  Sender: FDA-Public Use
  Company Number: GB-009507513-2009SP022956

PATIENT

DRUGS (10)
  1. ABILIFY [Suspect]
     Indication: SCHIZOAFFECTIVE DISORDER
     Dosage: UNK UNK, UNKNOWN
     Route: 048
  2. ABILIFY [Suspect]
     Dosage: 15 MG, QAM
     Route: 048
  3. VALPROATE SODIUM [Suspect]
     Indication: PRODUCT USED FOR UNKNOWN INDICATION
  4. ABILIFY [Suspect]
     Indication: METABOLIC SYNDROME
     Dosage: 15 MG, QAM
     Route: 048
     Dates: start: 20080401
  5. LITHIUM CARBONATE [Concomitant]
     Indication: PRODUCT USED FOR UNKNOWN INDICATION
     Dosage: 600 MG, QD
  6. RISPERIDONE [Suspect]
     Indication: PRODUCT USED FOR UNKNOWN INDICATION
  7. DULOXETINE HYDROCHLORIDE [Suspect]
     Indication: PRODUCT USED FOR UNKNOWN INDICATION
  8. EFFEXOR [Concomitant]
     Indication: DEPRESSION
     Dosage: 225 MG, QD
     Route: 048
  9. QUETIAPINE FUMARATE [Suspect]
     Indication: PRODUCT USED FOR UNKNOWN INDICATION
  10. MIRTAZAPINE [Suspect]
     Indication: PRODUCT USED FOR UNKNOWN INDICATION

REACTIONS (3)
  - LIVER FUNCTION TEST ABNORMAL [None]
  - METABOLIC SYNDROME [None]
  - HYPOTHYROIDISM [None]
